FAERS Safety Report 4562576-3 (Version None)
Quarter: 2005Q1

REPORT INFORMATION
  Report Type: 
  Country: None (occurrence: None)
  Receive Date: 20050127
  Receipt Date: 20040702
  Transmission Date: 20050727
  Serious: Yes (Death, Hospitalization)
  Sender: FDA-Public Use
  Company Number: ES-ROCHE-372866

PATIENT
  Age: 64 Year
  Sex: Female

DRUGS (5)
  1. CAPECITABINE [Suspect]
     Indication: BREAST CANCER
     Dosage: TWO WEEKS TREATMENT FOLLOWED BY ONE WEEK REST
     Route: 048
     Dates: start: 20040317, end: 20040503
  2. IXABEPILONE [Suspect]
     Indication: BREAST CANCER
     Dosage: ON DAY 1
     Route: 042
     Dates: start: 20040317, end: 20040503
  3. INSULIN [Concomitant]
  4. SEGURIL [Concomitant]
     Dates: start: 20040223
  5. TRANKIMAZIN [Concomitant]

REACTIONS (14)
  - ABDOMINAL PAIN [None]
  - ANAEMIA [None]
  - ATELECTASIS [None]
  - DEPRESSED LEVEL OF CONSCIOUSNESS [None]
  - FEBRILE NEUTROPENIA [None]
  - GRAND MAL CONVULSION [None]
  - INTESTINAL PERFORATION [None]
  - ISCHAEMIA [None]
  - MUCOSAL INFLAMMATION [None]
  - NEUTROPHIL COUNT DECREASED [None]
  - PNEUMOPERITONEUM [None]
  - RESPIRATORY FAILURE [None]
  - SEPSIS [None]
  - THROMBOCYTOPENIA [None]
